FAERS Safety Report 6035368-6 (Version None)
Quarter: 2009Q1

REPORT INFORMATION
  Report Type: 
  Country: None (occurrence: None)
  Receive Date: 20090109
  Receipt Date: 20090109
  Transmission Date: 20090719
  Serious: No
  Sender: FDA-Public Use
  Company Number: None

PATIENT
  Sex: Female

DRUGS (4)
  1. FOSAMAX [Suspect]
     Indication: OSTEOPOROSIS
     Dosage: 70 MG WEEKLY ORAL
     Route: 048
     Dates: start: 20010701, end: 20080401
  2. ATENOLOL [Concomitant]
  3. SPIRONOLACTONE [Concomitant]
  4. CLUCOSAMINE [Concomitant]

REACTIONS (4)
  - JAW DISORDER [None]
  - PAIN [None]
  - SWELLING [None]
  - TOOTH ABSCESS [None]
